FAERS Safety Report 6008308-3 (Version None)
Quarter: 2008Q4

REPORT INFORMATION
  Report Type: 
  Country: None (occurrence: None)
  Receive Date: 20081215
  Receipt Date: 20081204
  Transmission Date: 20090506
  Serious: Yes (Hospitalization)
  Sender: FDA-Public Use
  Company Number: 2008SP024770

PATIENT
  Age: 77 Year
  Sex: Male

DRUGS (6)
  1. DIAFUSOR (GLYCERYL TRINITRATE) (GLYCERYL TRINITRATE) [Suspect]
     Indication: DRUG USE FOR UNKNOWN INDICATION
  2. PREVISCAN (FLUINDIONE) [Suspect]
     Indication: DRUG USE FOR UNKNOWN INDICATION
  3. SPIRONOLACTONE [Suspect]
     Indication: DRUG USE FOR UNKNOWN INDICATION
  4. RILMENIDINE (RILMENIDINE) [Suspect]
     Indication: DRUG USE FOR UNKNOWN INDICATION
  5. ZESTRIL [Suspect]
     Indication: DRUG USE FOR UNKNOWN INDICATION
  6. ALLOPURINOL [Suspect]
     Indication: DRUG USE FOR UNKNOWN INDICATION
     Dosage: 1 DF; QD
     Dates: start: 20020101, end: 20031123

REACTIONS (3)
  - DYSHIDROSIS [None]
  - PSORIASIS [None]
  - TOXIC SKIN ERUPTION [None]
